FAERS Safety Report 12128843 (Version 1)
Quarter: 2016Q1

REPORT INFORMATION
  Report Type: Spontaneous
  Country: AR (occurrence: AR)
  Receive Date: 20160229
  Receipt Date: 20160229
  Transmission Date: 20160526
  Serious: Yes (Other)
  Sender: FDA-Public Use
  Company Number: AR-BIOMARINAP-AR-2016-109041

PATIENT
  Age: 29 Year
  Weight: 22 kg

DRUGS (3)
  1. DEXAMETASON                        /00016001/ [Concomitant]
     Indication: PREMEDICATION
  2. DIPHENHYDRAMINE. [Concomitant]
     Active Substance: DIPHENHYDRAMINE
     Indication: PREMEDICATION
  3. VIMIZIM [Suspect]
     Active Substance: ELOSULFASE ALFA
     Indication: MUCOPOLYSACCHARIDOSIS IV
     Dosage: UNK, QW
     Route: 042
     Dates: start: 20150826

REACTIONS (1)
  - Sinus tachycardia [Unknown]

NARRATIVE: CASE EVENT DATE: 20151030
